FAERS Safety Report 6021097-1 (Version None)
Quarter: 2008Q4

REPORT INFORMATION
  Report Type: 
  Country: None (occurrence: None)
  Receive Date: 20081229
  Receipt Date: 20081216
  Transmission Date: 20090506
  Serious: Yes (Other)
  Sender: FDA-Public Use
  Company Number: CH-PFIZER INC-2008154283

PATIENT

DRUGS (3)
  1. RELPAX [Suspect]
     Indication: MIGRAINE
     Dosage: FREQUENCY: ONCE,
     Route: 048
     Dates: start: 20051230, end: 20051230
  2. PANTOZOL [Suspect]
     Indication: GASTROOESOPHAGEAL REFLUX DISEASE
     Dosage: 40 MG, 1X/DAY
     Route: 048
     Dates: start: 20051224, end: 20060107
  3. DAFALGAN [Concomitant]
     Route: 048

REACTIONS (2)
  - ABORTION [None]
  - DRUG EXPOSURE DURING PREGNANCY [None]
